FAERS Safety Report 12949675 (Version 1)
Quarter: 2016Q4

REPORT INFORMATION
  Report Type: Report from Study
  Country: None (occurrence: US)
  Receive Date: 20161116
  Receipt Date: 20161116
  Transmission Date: 20170207
  Serious: Yes (Other)
  Sender: FDA-Public Use
  Company Number: US-ABBVIE-16K-163-1617328-00

PATIENT
  Sex: Female

DRUGS (1)
  1. HUMIRA [Suspect]
     Active Substance: ADALIMUMAB
     Indication: CROHN^S DISEASE
     Route: 058
     Dates: start: 201603, end: 201606

REACTIONS (8)
  - Intra-abdominal haemorrhage [Unknown]
  - Rectal haemorrhage [Unknown]
  - Abdominal pain [Unknown]
  - Drug ineffective [Unknown]
  - Malaise [Unknown]
  - Depressed mood [Unknown]
  - Urinary tract infection [Unknown]
  - Rash [Unknown]

NARRATIVE: CASE EVENT DATE: 2016
